FAERS Safety Report 7290131 (Version 5)
Quarter: 2012Q4

REPORT INFORMATION
  Report Type: 
  Country: JP (occurrence: JP)
  Receive Date: 20100223
  Receipt Date: 20121224
  Transmission Date: 20130627
  Serious: Yes (Hospitalization, Other)
  Sender: FDA-Public Use
  Company Number: PHHY2010JP08193

PATIENT
  Sex: Female
  Weight: 47 kg

DRUGS (4)
  1. NEORAL [Suspect]
     Indication: PROPHYLAXIS AGAINST TRANSPLANT REJECTION
     Dosage: 100 mg, UNK
     Route: 048
  2. IMURAN [Concomitant]
     Indication: RENAL TRANSPLANT
     Dosage: 50 mg, daily
     Route: 048
  3. PREDNISOLONE [Concomitant]
     Indication: RENAL TRANSPLANT
     Dosage: 10 mg, UNK
     Route: 048
  4. APRESOLINE [Concomitant]
     Indication: HYPERTENSION
     Dosage: 50 mg, UNK
     Route: 048
     Dates: start: 200902

REACTIONS (6)
  - Renal artery stenosis [Unknown]
  - Osteonecrosis [Unknown]
  - Hypertension [Recovered/Resolved]
  - Hydronephrosis [Recovering/Resolving]
  - Premature labour [Unknown]
  - Exposure during pregnancy [Unknown]
